FAERS Safety Report 9259348 (Version 3)
Quarter: 2013Q2

REPORT INFORMATION
  Report Type: Report from Study
  Country: CA (occurrence: CA)
  Receive Date: 20130427
  Receipt Date: 20130617
  Transmission Date: 20140414
  Serious: Yes (Death, Hospitalization, Other)
  Sender: FDA-Public Use
  Company Number: CA-ROCHE-1165584

PATIENT
  Age: 61 Year
  Sex: Male

DRUGS (7)
  1. AVASTIN [Suspect]
     Indication: GLIOBLASTOMA
     Route: 042
     Dates: start: 20121030, end: 20130415
  2. VENLAFAXINE [Concomitant]
     Route: 065
  3. DECADRON [Concomitant]
     Route: 065
  4. METOCLOPRAMIDE [Concomitant]
     Route: 065
  5. DOCUSATE [Concomitant]
     Route: 065
  6. NEXIUM [Concomitant]
     Route: 065
  7. ONDANSETRON [Concomitant]
     Route: 065

REACTIONS (9)
  - Death [Fatal]
  - Disease progression [Unknown]
  - Brain oedema [Unknown]
  - Brain neoplasm [Unknown]
  - White blood cell count decreased [Not Recovered/Not Resolved]
  - Nasal congestion [Not Recovered/Not Resolved]
  - Platelet count decreased [Unknown]
  - Epistaxis [Recovered/Resolved]
  - Fatigue [Not Recovered/Not Resolved]
